FAERS Safety Report 5188106-3 (Version None)
Quarter: 2006Q4

REPORT INFORMATION
  Report Type: 
  Country: None (occurrence: None)
  Receive Date: 20061214
  Receipt Date: 20061214
  Transmission Date: 20070319
  Serious: Yes (Hospitalization)
  Sender: FDA-Public Use
  Company Number: None

PATIENT
  Sex: Female
  Weight: 74.8435 kg

DRUGS (1)
  1. PROLEX-D GFN 600/PHEN600 - 20 TAB CYPR [Suspect]
     Indication: MIDDLE EAR EFFUSION
     Dosage: AS PRESCRIBED 1 TABLET 2 X DAY 047
     Dates: start: 20061018, end: 20061029

REACTIONS (2)
  - ATRIAL FIBRILLATION [None]
  - PALPITATIONS [None]
